FAERS Safety Report 13377728 (Version 10)
Quarter: 2022Q1

REPORT INFORMATION
  Report Type: Spontaneous
  Country: US (occurrence: US)
  Receive Date: 20170328
  Receipt Date: 20220331
  Transmission Date: 20220423
  Serious: Yes (Hospitalization, Other)
  Sender: FDA-Public Use
  Company Number: US-PFIZER INC-2017127629

PATIENT
  Age: 1 Year
  Sex: Male
  Weight: 48 kg

DRUGS (14)
  1. RAPAMUNE [Suspect]
     Active Substance: SIROLIMUS
     Indication: Lymphatic disorder
     Dosage: 1.5 MG, 2X/DAY
     Route: 048
     Dates: start: 201112
  2. RAPAMUNE [Suspect]
     Active Substance: SIROLIMUS
     Indication: Vascular malformation
     Dosage: 1.3 ML, 2X/DAY
     Route: 048
  3. RAPAMUNE [Suspect]
     Active Substance: SIROLIMUS
     Indication: Cerebral venous thrombosis
     Dosage: 1.3 ML, 2X/DAY (1.3 60 ML/MG TOTAL)
     Dates: end: 201612
  4. RAPAMUNE [Suspect]
     Active Substance: SIROLIMUS
     Dosage: UNK
     Route: 048
     Dates: start: 201702, end: 2017
  5. RAPAMUNE [Suspect]
     Active Substance: SIROLIMUS
     Dosage: 1 MG/ML
  6. RAPAMUNE [Suspect]
     Active Substance: SIROLIMUS
     Dosage: 1.7 MG, UNK
  7. RAPAMUNE [Suspect]
     Active Substance: SIROLIMUS
     Dosage: 1.5 MG, UNK
  8. RAPAMUNE [Suspect]
     Active Substance: SIROLIMUS
     Dosage: 1.5 ML, 2X/DAY
     Route: 048
  9. RAPAMUNE [Suspect]
     Active Substance: SIROLIMUS
     Dosage: 1.6 MG, 2X/DAY
     Route: 048
  10. RAPAMUNE [Suspect]
     Active Substance: SIROLIMUS
     Dosage: 1.4 ML, 2X/DAY (1.4 MG TOTAL) BY MOUTH 2 TIMES DAILY, QTY 60 ML)
     Route: 048
  11. RAPAMUNE [Suspect]
     Active Substance: SIROLIMUS
     Dosage: 1.3 MG, 2X/DAY
     Route: 048
  12. BACTRIM [Concomitant]
     Active Substance: SULFAMETHOXAZOLE\TRIMETHOPRIM
     Dosage: UNK
     Dates: start: 201101, end: 201601
  13. FISH OIL [Concomitant]
     Active Substance: FISH OIL
     Indication: Blood cholesterol increased
     Dosage: UNK
     Dates: start: 2012
  14. SPIRONOLACTONE [Concomitant]
     Active Substance: SPIRONOLACTONE
     Dosage: 50 MG, 2X/DAY
     Dates: start: 20170416

REACTIONS (14)
  - Pleural effusion [Recovered/Resolved]
  - Neoplasm progression [Recovered/Resolved]
  - Pneumothorax [Unknown]
  - Wrong dosage formulation [Unknown]
  - Off label use [Unknown]
  - Off label use [Unknown]
  - Weight increased [Not Recovered/Not Resolved]
  - Diarrhoea [Not Recovered/Not Resolved]
  - Blood cholesterol increased [Recovered/Resolved]
  - Blood iron decreased [Not Recovered/Not Resolved]
  - Hypertension [Recovered/Resolved]
  - Drug resistance [Unknown]
  - Scar [Unknown]
  - Infection [Unknown]

NARRATIVE: CASE EVENT DATE: 20110101
